FAERS Safety Report 11653526 (Version 3)
Quarter: 2016Q1

REPORT INFORMATION
  Report Type: Spontaneous
  Country: US (occurrence: US)
  Receive Date: 20151022
  Receipt Date: 20160106
  Transmission Date: 20160525
  Serious: No
  Sender: FDA-Public Use
  Company Number: US-009507513-1510USA004008

PATIENT
  Age: 68 Year
  Sex: Male

DRUGS (2)
  1. ASMANEX [Suspect]
     Active Substance: MOMETASONE FUROATE
     Dosage: 1 PUFF DAILY
  2. ASMANEX [Suspect]
     Active Substance: MOMETASONE FUROATE
     Indication: ASTHMA
     Dosage: 2 PUFFS DAILY
     Dates: start: 201403

REACTIONS (7)
  - Candida infection [Unknown]
  - Wrong technique in product usage process [Unknown]
  - Throat irritation [Not Recovered/Not Resolved]
  - Oropharyngeal pain [Unknown]
  - Underdose [Unknown]
  - Dysphonia [Not Recovered/Not Resolved]
  - Glaucoma [Unknown]

NARRATIVE: CASE EVENT DATE: 2014
